FAERS Safety Report 7385341-0 (Version None)
Quarter: 2011Q1

REPORT INFORMATION
  Report Type: 
  Country: None (occurrence: None)
  Receive Date: 20110330
  Receipt Date: 20100924
  Transmission Date: 20110831
  Serious: No
  Sender: FDA-Public Use
  Company Number: US-MYLANLABS-2010S1017492

PATIENT
  Sex: Female

DRUGS (3)
  1. KLONOPIN [Concomitant]
  2. EMSAM [Suspect]
     Route: 062
     Dates: start: 20100701
  3. LITHIUM /00033702/ [Concomitant]

REACTIONS (2)
  - INSOMNIA [None]
  - DYSARTHRIA [None]
